FAERS Safety Report 8096356-1 (Version None)
Quarter: 2012Q1

REPORT INFORMATION
  Report Type: 
  Country: None (occurrence: None)
  Receive Date: 20120131
  Receipt Date: 20120123
  Transmission Date: 20120608
  Serious: Yes (Death, Other)
  Sender: FDA-Public Use
  Company Number: GXKR2007DK11211

PATIENT
  Sex: Male

DRUGS (1)
  1. METHOTREXATE [Suspect]
     Indication: ARTHRITIS
     Dosage: DAILY DOSE: 7.5 MILLIGRAM
     Route: 048
     Dates: start: 20040101, end: 20050101

REACTIONS (10)
  - DIARRHOEA [None]
  - FATIGUE [None]
  - RENAL IMPAIRMENT [None]
  - WEIGHT DECREASED [None]
  - ARTHRALGIA [None]
  - NAUSEA [None]
  - ABDOMINAL PAIN UPPER [None]
  - BONE MARROW DISORDER [None]
  - INFECTION [None]
  - ORAL FUNGAL INFECTION [None]
